FAERS Safety Report 19400041 (Version 1)
Quarter: 2021Q2

REPORT INFORMATION
  Report Type: Spontaneous
  Country: US (occurrence: US)
  Receive Date: 20210610
  Receipt Date: 20210610
  Transmission Date: 20210717
  Serious: No
  Sender: FDA-Public Use
  Company Number: US-MYLANLABS-2021M1031014

PATIENT
  Age: 48 Year
  Sex: Female
  Weight: 86 kg

DRUGS (11)
  1. METOPROLOL. [Concomitant]
     Active Substance: METOPROLOL
     Dosage: UNK
  2. TOPAMAX [Concomitant]
     Active Substance: TOPIRAMATE
     Dosage: UNK
  3. LEVOTHYROXINE SODIUM TABLETS, USP [Suspect]
     Active Substance: LEVOTHYROXINE SODIUM
     Indication: AUTOIMMUNE THYROIDITIS
     Dosage: UNK, QD
     Route: 048
     Dates: start: 202104
  4. LISINOPRIL. [Concomitant]
     Active Substance: LISINOPRIL
     Dosage: UNK
  5. HCTZ [Concomitant]
     Active Substance: HYDROCHLOROTHIAZIDE
     Dosage: UNK
  6. OMEPRAZOLE. [Concomitant]
     Active Substance: OMEPRAZOLE
     Dosage: UNK
  7. METAXALONE. [Concomitant]
     Active Substance: METAXALONE
     Dosage: UNK
  8. GABAPENTIN. [Concomitant]
     Active Substance: GABAPENTIN
     Dosage: UNK
  9. WELLBUTRIN [Concomitant]
     Active Substance: BUPROPION HYDROCHLORIDE
     Dosage: UNK
  10. MONTELUKAST SODIUM. [Concomitant]
     Active Substance: MONTELUKAST SODIUM
     Dosage: UNK
  11. PERCOCET                           /00446701/ [Concomitant]
     Active Substance: ACETAMINOPHEN\OXYCODONE HYDROCHLORIDE\OXYCODONE TEREPHTHALATE
     Dosage: UNK

REACTIONS (2)
  - Hyperhidrosis [Not Recovered/Not Resolved]
  - Pruritus [Not Recovered/Not Resolved]

NARRATIVE: CASE EVENT DATE: 20210501
